FAERS Safety Report 14426729 (Version 2)
Quarter: 2018Q1

REPORT INFORMATION
  Report Type: Spontaneous
  Country: US (occurrence: US)
  Receive Date: 20180123
  Receipt Date: 20180305
  Transmission Date: 20180509
  Serious: No
  Sender: FDA-Public Use
  Company Number: US-GLAXOSMITHKLINE-US2018009462

PATIENT
  Sex: Male

DRUGS (5)
  1. VENTOLIN HFA [Suspect]
     Active Substance: ALBUTEROL SULFATE
     Indication: ACUTE SINUSITIS
     Dosage: UNK
     Route: 055
     Dates: start: 20180103
  2. VENTOLIN HFA [Suspect]
     Active Substance: ALBUTEROL SULFATE
     Indication: BRONCHITIS
  3. METOPROLOL. [Concomitant]
     Active Substance: METOPROLOL
  4. PROAIR HFA [Suspect]
     Active Substance: ALBUTEROL SULFATE
     Indication: PRODUCT USED FOR UNKNOWN INDICATION
  5. RED YEAST RICE [Concomitant]
     Active Substance: DIETARY SUPPLEMENT

REACTIONS (5)
  - Product quality issue [Unknown]
  - Drug ineffective [Recovering/Resolving]
  - Intentional product misuse [Unknown]
  - Wheezing [Not Recovered/Not Resolved]
  - Prescription drug used without a prescription [Unknown]
